FAERS Safety Report 5724098-3 (Version None)
Quarter: 2008Q2

REPORT INFORMATION
  Report Type: 
  Country: None (occurrence: None)
  Receive Date: 20080430
  Receipt Date: 20080424
  Transmission Date: 20081010
  Serious: Yes (Hospitalization)
  Sender: FDA-Public Use
  Company Number: JP-BOEHRINGER INGELHEIM GMBH, GERMANY-2008-BP-06529NB

PATIENT
  Sex: Female
  Weight: 57 kg

DRUGS (2)
  1. MICARDIS [Suspect]
     Indication: HYPERTENSION
     Route: 048
     Dates: start: 20070331
  2. PLETAL [Concomitant]
     Route: 048
     Dates: start: 20070922

REACTIONS (1)
  - ARTERIOSCLEROSIS OBLITERANS [None]
